FAERS Safety Report 20988882 (Version 1)
Quarter: 2022Q2

REPORT INFORMATION
  Report Type: Report from Study
  Country: JP (occurrence: JP)
  Receive Date: 20220621
  Receipt Date: 20220621
  Transmission Date: 20220720
  Serious: Yes (Hospitalization, Other)
  Sender: FDA-Public Use
  Company Number: JP-CELGENE-JPN-20220207087

PATIENT
  Age: 85 Year
  Sex: Female
  Weight: 34.8 kg

DRUGS (7)
  1. ISTODAX [Suspect]
     Active Substance: ROMIDEPSIN
     Indication: Peripheral T-cell lymphoma unspecified
     Dosage: FREQUENCY TEXT: UNKNOWN?UNKNOWN
     Route: 041
     Dates: start: 20220117, end: 20220117
  2. ISTODAX [Suspect]
     Active Substance: ROMIDEPSIN
     Route: 041
     Dates: start: 20220124, end: 20220124
  3. ISTODAX [Suspect]
     Active Substance: ROMIDEPSIN
     Route: 041
     Dates: start: 20220131, end: 20220131
  4. ISTODAX [Suspect]
     Active Substance: ROMIDEPSIN
     Route: 041
     Dates: start: 20220214, end: 20220214
  5. ISTODAX [Suspect]
     Active Substance: ROMIDEPSIN
     Route: 041
     Dates: start: 20220221, end: 20220221
  6. ACYCLOVIR [Concomitant]
     Active Substance: ACYCLOVIR
     Indication: Prophylaxis
     Route: 048
  7. SULFAMETHOXAZOLE\TRIMETHOPRIM [Concomitant]
     Active Substance: SULFAMETHOXAZOLE\TRIMETHOPRIM
     Indication: Prophylaxis
     Route: 048

REACTIONS (1)
  - Malignant neoplasm progression [Not Recovered/Not Resolved]

NARRATIVE: CASE EVENT DATE: 20220228
